FAERS Safety Report 13521068 (Version 1)
Quarter: 2017Q2

REPORT INFORMATION
  Report Type: Spontaneous
  Country: AU (occurrence: AU)
  Receive Date: 20170508
  Receipt Date: 20170508
  Transmission Date: 20170830
  Serious: Yes (Other)
  Sender: FDA-Public Use
  Company Number: AU-AMGEN-AUSSP2017052531

PATIENT
  Age: 78 Year
  Sex: Female
  Weight: 67.5 kg

DRUGS (11)
  1. LYRICA [Concomitant]
     Active Substance: PREGABALIN
     Dosage: 25 MG, 1 B. D. M, D. U
     Route: 048
  2. OSTEVIT-D [Concomitant]
     Dosage: 7000 UNIT, QWK
     Route: 048
  3. LIPITOR [Concomitant]
     Active Substance: ATORVASTATIN CALCIUM
     Dosage: 40 MG, QD
     Route: 048
  4. LOSEC [Concomitant]
     Active Substance: OMEPRAZOLE
     Dosage: 20 MG, QD
     Route: 048
  5. PANAMAX [Concomitant]
     Active Substance: ACETAMINOPHEN
     Dosage: 500 MG, 1-2 Q.I.D.
     Route: 048
  6. SCHERIPROCT [Concomitant]
     Active Substance: DIBUCAINE HYDROCHLORIDE\PREDNISOLONE
     Dosage: 1.9MG-5MG/G, APPLY B.D, RN.D.U,
     Route: 061
  7. MOVICOL [Concomitant]
     Active Substance: POLYETHYLENE GLYCOL 3350\POTASSIUM CHLORIDE\SODIUM BICARBONATE\SODIUM CHLORIDE
     Dosage: 13.125G/:350.8
     Route: 048
  8. NEO B12 [Concomitant]
     Dosage: 1 MG/ML, UNK
     Route: 030
  9. PROLIA [Suspect]
     Active Substance: DENOSUMAB
     Indication: OSTEOPOROSIS POSTMENOPAUSAL
     Dosage: 60 MG, Q6MO
     Route: 058
     Dates: start: 20121109
  10. COLOXYL WITH SENNA [Concomitant]
     Active Substance: DOCUSATE\SENNOSIDES
     Dosage: 50 MG, 2 NOCTE
     Route: 048
  11. REFRESH TEARS PLUS [Concomitant]
     Dosage: APPLY M.D,U.
     Route: 031

REACTIONS (5)
  - Injection site haemorrhage [Unknown]
  - Blood alkaline phosphatase abnormal [Unknown]
  - Injection site pain [Recovered/Resolved]
  - Injection site bruising [Recovered/Resolved]
  - Anaemia [Unknown]

NARRATIVE: CASE EVENT DATE: 201703
